FAERS Safety Report 14732393 (Version 1)
Quarter: 2018Q2

REPORT INFORMATION
  Report Type: Report from Study
  Country: JP (occurrence: JP)
  Receive Date: 20180409
  Receipt Date: 20180409
  Transmission Date: 20180711
  Serious: Yes (Death)
  Sender: FDA-Public Use
  Company Number: JP-UCBSA-2018014850

PATIENT
  Sex: Male
  Weight: 78 kg

DRUGS (10)
  1. DEPAKENE [Concomitant]
     Active Substance: VALPROIC ACID
     Indication: PSYCHIATRIC SYMPTOM
     Dosage: 200 MG DAILY
     Route: 048
     Dates: start: 20160812, end: 20160812
  2. LACOSAMIDE. [Suspect]
     Active Substance: LACOSAMIDE
     Indication: SIMPLE PARTIAL SEIZURES
  3. LACOSAMIDE. [Suspect]
     Active Substance: LACOSAMIDE
     Indication: PARTIAL SEIZURES WITH SECONDARY GENERALISATION
     Dosage: 50 MG, 2X/DAY (BID)
     Route: 048
     Dates: start: 20171026, end: 20171226
  4. E KEPPRA [Suspect]
     Active Substance: LEVETIRACETAM
     Indication: PARTIAL SEIZURES WITH SECONDARY GENERALISATION
     Dosage: 1500 MG DAILY
     Route: 048
     Dates: start: 20170902, end: 20170903
  5. E KEPPRA [Suspect]
     Active Substance: LEVETIRACETAM
     Dosage: 2000 MG DAILY
     Route: 048
     Dates: start: 20170904, end: 20171226
  6. LACOSAMIDE. [Suspect]
     Active Substance: LACOSAMIDE
     Indication: FOCAL DYSCOGNITIVE SEIZURES
  7. E KEPPRA [Suspect]
     Active Substance: LEVETIRACETAM
     Indication: SIMPLE PARTIAL SEIZURES
     Dosage: 1000 MG DAILY
     Route: 048
     Dates: start: 20170303, end: 20170902
  8. DEPAKENE [Concomitant]
     Active Substance: VALPROIC ACID
     Dosage: 400 MG DAILY
     Route: 048
     Dates: start: 20160813, end: 20161209
  9. DEPAKENE [Concomitant]
     Active Substance: VALPROIC ACID
     Dosage: 1200 MG DAILY
     Route: 048
     Dates: start: 20161014, end: 20170303
  10. LAMICTAL [Concomitant]
     Active Substance: LAMOTRIGINE
     Indication: BIPOLAR DISORDER
     Dosage: 50 MG DAILY
     Route: 048
     Dates: start: 20160615, end: 20160813

REACTIONS (1)
  - Glioblastoma [Fatal]
